FAERS Safety Report 20709949 (Version 1)
Quarter: 2022Q2

REPORT INFORMATION
  Report Type: Spontaneous
  Country: US (occurrence: US)
  Receive Date: 20220414
  Receipt Date: 20220414
  Transmission Date: 20220720
  Serious: No
  Sender: FDA-Public Use
  Company Number: US-TOPROL-2022000021

PATIENT
  Age: 75 Year
  Sex: Female

DRUGS (1)
  1. METOPROLOL SUCCINATE [Suspect]
     Active Substance: METOPROLOL SUCCINATE
     Indication: Ventricular extrasystoles
     Dosage: I BREAK IT IN HALF AND TAKE IT TWICE A DAY.
     Route: 048

REACTIONS (5)
  - Product use issue [Unknown]
  - Hypertension [Unknown]
  - Drug ineffective [Unknown]
  - Tachycardia [Recovered/Resolved]
  - Product use in unapproved indication [Unknown]
